FAERS Safety Report 9708758 (Version 2)
Quarter: 2013Q4

REPORT INFORMATION
  Report Type: Spontaneous
  Country: JP (occurrence: JP)
  Receive Date: 20131125
  Receipt Date: 20131217
  Transmission Date: 20140711
  Serious: Yes (Hospitalization)
  Sender: FDA-Public Use
  Company Number: JP-VIIV HEALTHCARE LIMITED-B0947256A

PATIENT
  Age: 35 Year
  Sex: Male

DRUGS (4)
  1. ZIAGEN [Suspect]
     Indication: HIV INFECTION
     Dosage: 300MG TWICE PER DAY
     Route: 048
     Dates: start: 2007
  2. EPIVIR [Suspect]
     Indication: HIV INFECTION
     Dosage: 50MG TWICE PER DAY
     Route: 048
     Dates: start: 2007, end: 2012
  3. EPIVIR [Suspect]
     Indication: HIV INFECTION
     Dosage: 25MG PER DAY
     Route: 048
     Dates: start: 2012
  4. ISENTRESS [Concomitant]
     Indication: HIV INFECTION
     Dosage: 400MG TWICE PER DAY
     Route: 048
     Dates: start: 2007

REACTIONS (4)
  - Renal impairment [Not Recovered/Not Resolved]
  - Renal failure chronic [Not Recovered/Not Resolved]
  - Staphylococcal bacteraemia [Unknown]
  - Diabetic nephropathy [Not Recovered/Not Resolved]
